FAERS Safety Report 4436679-8 (Version None)
Quarter: 2004Q3

REPORT INFORMATION
  Report Type: 
  Country: None (occurrence: None)
  Receive Date: 20040728
  Receipt Date: 20031104
  Transmission Date: 20050211
  Serious: Yes (Life-Threatening, Hospitalization)
  Sender: FDA-Public Use
  Company Number: 203185

PATIENT
  Sex: Female

DRUGS (1)
  1. RITUXAN [Suspect]
     Indication: THROMBOTIC THROMBOCYTOPENIC PURPURA
     Dosage: 375 MG/M2, INTRAVENOUS
     Route: 042
     Dates: start: 20031101

REACTIONS (3)
  - CARDIAC DISORDER [None]
  - HYPOXIA [None]
  - RESPIRATORY DISTRESS [None]
